FAERS Safety Report 25616144 (Version 1)
Quarter: 2025Q3

REPORT INFORMATION
  Report Type: Report from Study
  Country: US (occurrence: US)
  Receive Date: 20250729
  Receipt Date: 20250729
  Transmission Date: 20251021
  Serious: Yes (Other)
  Sender: ALEXION PHARMACEUTICALS
  Company Number: US-AstraZeneca-CH-00918472A

PATIENT
  Age: 60 Year
  Sex: Female

DRUGS (1)
  1. ACALABRUTINIB [Suspect]
     Active Substance: ACALABRUTINIB
     Indication: Mantle cell lymphoma
     Dosage: 100 MILLIGRAM, BID

REACTIONS (5)
  - Loss of consciousness [Unknown]
  - Respiratory arrest [Unknown]
  - Feeling abnormal [Unknown]
  - Vomiting [Unknown]
  - Product dose omission issue [Unknown]
